FAERS Safety Report 9637069 (Version 4)
Quarter: 2013Q4

REPORT INFORMATION
  Report Type: Report from Study
  Country: FR (occurrence: FR)
  Receive Date: 20131022
  Receipt Date: 20131118
  Transmission Date: 20140711
  Serious: Yes (Hospitalization)
  Sender: FDA-Public Use
  Company Number: FR-ROCHE-1265345

PATIENT
  Age: 75 Year
  Sex: Female
  Weight: 59 kg

DRUGS (5)
  1. RITUXIMAB [Suspect]
     Indication: CHRONIC LYMPHOCYTIC LEUKAEMIA
     Dosage: C1:375 MG/M2, C2-C4 500MG/M2
     Route: 041
     Dates: start: 20091117, end: 20100301
  2. RITUXIMAB [Suspect]
     Dosage: C1-C6: 500MG
     Route: 065
     Dates: start: 20110727, end: 20111212
  3. BENDAMUSTINE [Suspect]
     Indication: CHRONIC LYMPHOCYTIC LEUKAEMIA
     Route: 065
     Dates: start: 201107, end: 201112
  4. FLUDARABINE [Concomitant]
  5. ENDOXAN [Concomitant]

REACTIONS (2)
  - Adenocarcinoma of colon [Not Recovered/Not Resolved]
  - Abdominal pain [Unknown]
